FAERS Safety Report 8837969 (Version 2)
Quarter: 2015Q1

REPORT INFORMATION
  Report Type: Report from Study
  Country: US (occurrence: US)
  Receive Date: 20121012
  Receipt Date: 20150202
  Transmission Date: 20150721
  Serious: Yes (Death)
  Sender: FDA-Public Use
  Company Number: US-ROCHE-1127414

PATIENT
  Sex: Male
  Weight: 11.08 kg

DRUGS (3)
  1. PROTROPIN [Suspect]
     Active Substance: SOMATREM
     Indication: DWARFISM
     Route: 058
     Dates: start: 19910401
  2. NUTROPIN [Suspect]
     Active Substance: SOMATROPIN
     Indication: DWARFISM
     Route: 065
     Dates: start: 19910529
  3. PROTROPIN [Suspect]
     Active Substance: SOMATREM
     Indication: BRONCHOMALACIA

REACTIONS (1)
  - Death [Fatal]
